FAERS Safety Report 7076369-9 (Version None)
Quarter: 2010Q4

REPORT INFORMATION
  Report Type: 
  Country: None (occurrence: None)
  Receive Date: 20101021
  Receipt Date: 20101013
  Transmission Date: 20110411
  Serious: Yes (Hospitalization)
  Sender: FDA-Public Use
  Company Number: CIP10002124

PATIENT
  Age: 88 Year
  Sex: Male

DRUGS (12)
  1. RISEDRONATE SODIUM [Suspect]
     Indication: OSTEOPOROSIS
     Dosage: 17.5 MG ONCE WEEKLY, ORAL; 17.5 MG ONCE A WEEK, ORAL
     Route: 048
     Dates: start: 20081005, end: 20090813
  2. RISEDRONATE SODIUM [Suspect]
     Indication: OSTEOPOROSIS
     Dosage: 17.5 MG ONCE WEEKLY, ORAL; 17.5 MG ONCE A WEEK, ORAL
     Route: 048
     Dates: start: 20090822
  3. MUCOSOL /00546002/ (AMBROXOL HYDROCHLORIDE) [Concomitant]
  4. HACHIMIJIO-GAN (HERBAL EXTRACT NOS) [Concomitant]
  5. CANDESARTAN CILEXETIL [Concomitant]
  6. SINGULAIR [Concomitant]
  7. TERSIGAN (OXITROPIUM BROMIDE) [Concomitant]
  8. LENDORM [Concomitant]
  9. ISALON (ALDIOXA) [Concomitant]
  10. ADVAIR DISKUS 100/50 [Concomitant]
  11. ANGINAL /00042901/ (DIPYRIDAMOLE) [Concomitant]
  12. ROCALTROL [Concomitant]

REACTIONS (3)
  - CONSTIPATION [None]
  - INAPPROPRIATE SCHEDULE OF DRUG ADMINISTRATION [None]
  - INGUINAL HERNIA [None]
